FAERS Safety Report 24746128 (Version 1)
Quarter: 2024Q4

REPORT INFORMATION
  Report Type: Report from Study
  Country: NL (occurrence: NL)
  Receive Date: 20241218
  Receipt Date: 20241218
  Transmission Date: 20250115
  Serious: Yes (Hospitalization, Other)
  Sender: AUROBINDO
  Company Number: NL-AUROBINDO-AUR-APL-2016-04291

PATIENT
  Age: 54 Year
  Sex: Female

DRUGS (4)
  1. DOCETAXEL [Suspect]
     Active Substance: DOCETAXEL
     Indication: Intraductal proliferative breast lesion
     Dosage: 75 MILLIGRAM/SQ. METER, CYCLICAL (75 MG/M2 ON DAY 1 OF EACH CYCLE, EVERY 3 WEEKS)
     Route: 065
  2. CAPECITABINE [Suspect]
     Active Substance: CAPECITABINE
     Indication: Intraductal proliferative breast lesion
     Dosage: 825 MILLIGRAM/SQ. METER, CYCLICAL (825 MG/M2 TWICE DAILY ON DAYS 1-14 OF EACH CYCLE, EVERY 3 WEEKS;
     Route: 065
  3. CAPECITABINE [Suspect]
     Active Substance: CAPECITABINE
     Dosage: UNK (REDUCED BY 75% IN CYCLE 3)
     Route: 065
  4. CAPECITABINE [Suspect]
     Active Substance: CAPECITABINE
     Dosage: 1650 MILLIGRAM/SQ. METER, CYCLICAL (1650 MG/M2 DAILY; 825 MG/M2 TWICE DAILY ON DAYS 1-14 OF EACH CYC
     Route: 065

REACTIONS (8)
  - Febrile neutropenia [Unknown]
  - Leukopenia [Unknown]
  - Diarrhoea [Unknown]
  - Pyrexia [Unknown]
  - Mastitis [Unknown]
  - Palmar-plantar erythrodysaesthesia syndrome [Recovering/Resolving]
  - Neutropenia [Recovered/Resolved]
  - Toxicity to various agents [Unknown]
